FAERS Safety Report 9852643 (Version 2)
Quarter: 2014Q1

REPORT INFORMATION
  Report Type: Spontaneous
  Country: ES (occurrence: ES)
  Receive Date: 20140129
  Receipt Date: 20140129
  Transmission Date: 20141002
  Serious: Yes (Hospitalization)
  Sender: FDA-Public Use
  Company Number: ES-PFIZER INC-2014017795

PATIENT
  Age: 31 Year
  Sex: Female

DRUGS (1)
  1. EPANUTIN [Suspect]
     Indication: EPILEPSY
     Dosage: 100 MG, 2X/DAY (IN THE MORNING AND AT NIGHT)

REACTIONS (1)
  - Gingival inflammation [Recovered/Resolved]
